FAERS Safety Report 4902463-1 (Version None)
Quarter: 2006Q1

REPORT INFORMATION
  Report Type: 
  Country: None (occurrence: None)
  Receive Date: 20060207
  Receipt Date: 20060126
  Transmission Date: 20060701
  Serious: Yes (Other)
  Sender: FDA-Public Use
  Company Number: DE-JNJFOC-20060103409

PATIENT
  Age: 55 Year
  Sex: Female
  Weight: 64 kg

DRUGS (1)
  1. INFLIXIMAB [Suspect]
     Indication: RHEUMATOID ARTHRITIS
     Route: 042

REACTIONS (9)
  - BLOOD ALKALINE PHOSPHATASE INCREASED [None]
  - BLOOD GLUCOSE INCREASED [None]
  - C-REACTIVE PROTEIN INCREASED [None]
  - LYMPHOCYTE PERCENTAGE DECREASED [None]
  - MEAN CELL VOLUME INCREASED [None]
  - NEUTROPHIL PERCENTAGE INCREASED [None]
  - PROCTITIS ULCERATIVE [None]
  - RED BLOOD CELL SEDIMENTATION RATE INCREASED [None]
  - WHITE BLOOD CELL COUNT INCREASED [None]
